FAERS Safety Report 24944423 (Version 1)
Quarter: 2025Q1

REPORT INFORMATION
  Report Type: Spontaneous
  Country: US (occurrence: US)
  Receive Date: 20250208
  Receipt Date: 20250208
  Transmission Date: 20250409
  Serious: No
  Sender: COSETTE PHARMACEUTICALS INC
  Company Number: US-COSETTE-CP2025US000080

PATIENT
  Age: 74 Year
  Sex: Female
  Weight: 125 kg

DRUGS (1)
  1. MOMETASONE FUROATE [Suspect]
     Active Substance: MOMETASONE FUROATE
     Indication: Dermatosis
     Route: 061
     Dates: start: 20250114, end: 20250127

REACTIONS (2)
  - Skin discolouration [Unknown]
  - Skin discharge [Unknown]

NARRATIVE: CASE EVENT DATE: 20250124
